FAERS Safety Report 7940029-X (Version None)
Quarter: 2011Q4

REPORT INFORMATION
  Report Type: 
  Country: None (occurrence: None)
  Receive Date: 20111125
  Receipt Date: 20111122
  Transmission Date: 20120403
  Serious: No
  Sender: FDA-Public Use
  Company Number: US-PFIZER INC-2011286135

PATIENT
  Sex: Female
  Weight: 74.83 kg

DRUGS (5)
  1. TEGRETOL [Concomitant]
     Indication: CONVULSION
     Dosage: 2X/DAY
  2. LIPITOR [Suspect]
     Indication: CEREBROVASCULAR ACCIDENT
     Dosage: 10 MG, DAILY
     Route: 048
     Dates: start: 20111001
  3. ATENOLOL [Concomitant]
     Indication: HYPERTENSION
     Dosage: 3X/DAY
  4. NORVASC [Concomitant]
     Indication: HYPERTENSION
     Dosage: UNK, DAILY
     Route: 048
  5. PHENOBARBITAL [Concomitant]
     Indication: CONVULSION
     Dosage: UNK, 2X/DAY

REACTIONS (1)
  - TENOSYNOVITIS STENOSANS [None]
